FAERS Safety Report 22207773 (Version 1)
Quarter: 2023Q2

REPORT INFORMATION
  Report Type: Spontaneous
  Country: CA (occurrence: CA)
  Receive Date: 20230413
  Receipt Date: 20230413
  Transmission Date: 20230722
  Serious: Yes (Death)
  Sender: FDA-Public Use
  Company Number: CA-PFIZER INC-202300152229

PATIENT
  Age: 56 Year
  Sex: Male

DRUGS (5)
  1. HYDROMORPHONE HYDROCHLORIDE [Suspect]
     Active Substance: HYDROMORPHONE HYDROCHLORIDE
     Dosage: UNK
  2. ALCOHOL [Suspect]
     Active Substance: ALCOHOL
     Dosage: UNK
  3. PREGABALIN [Suspect]
     Active Substance: PREGABALIN
     Dosage: UNK
  4. QUETIAPINE [Suspect]
     Active Substance: QUETIAPINE
     Dosage: UNK
  5. ACETAMINOPHEN [Concomitant]
     Active Substance: ACETAMINOPHEN
     Dosage: UNK

REACTIONS (3)
  - Alcohol poisoning [Fatal]
  - Nervous system disorder [Fatal]
  - Toxicity to various agents [Fatal]
